FAERS Safety Report 8399455-X (Version None)
Quarter: 2012Q1

REPORT INFORMATION
  Report Type: 
  Country: None (occurrence: None)
  Receive Date: 20120323
  Receipt Date: 20110311
  Transmission Date: 20120608
  Serious: Yes (Hospitalization, Other)
  Sender: FDA-Public Use
  Company Number: 163-21880-11012471

PATIENT
  Age: 63 Year
  Sex: Male

DRUGS (4)
  1. REVLIMID [Suspect]
     Dosage: 15 MG, DAILY X14 DAYS; OFF 1 WEEK AND RESTART, PO
     Route: 048
     Dates: start: 20101224, end: 20110309
  2. ALLOPURINOL [Suspect]
     Indication: PRODUCT USED FOR UNKNOWN INDICATION
  3. REVLIMID [Suspect]
     Indication: MULTIPLE MYELOMA
     Dosage: 25 MG, 1 IN 1 D, PO
     Route: 048
     Dates: start: 20101224
  4. ASPIRIN [Concomitant]

REACTIONS (4)
  - SEPSIS [None]
  - HYPERSENSITIVITY [None]
  - SKIN EXFOLIATION [None]
  - PYREXIA [None]
